FAERS Safety Report 24104453 (Version 1)
Quarter: 2024Q3

REPORT INFORMATION
  Report Type: Spontaneous
  Country: US (occurrence: None)
  Receive Date: 20240716
  Receipt Date: 20240716
  Transmission Date: 20241017
  Serious: No
  Sender: Public
  Company Number: None

PATIENT
  Age: 37 Year
  Sex: Male
  Weight: 97.98 kg

DRUGS (1)
  1. TOPIRAMATE [Suspect]
     Active Substance: TOPIRAMATE
     Indication: Migraine
     Dosage: OTHER QUANTITY : 3 TABS (150MG);?FREQUENCY : TWICE A DAY;?
     Route: 048
     Dates: start: 202206, end: 202206

REACTIONS (2)
  - Pruritus [None]
  - Presyncope [None]

NARRATIVE: CASE EVENT DATE: 20220601
